FAERS Safety Report 18174597 (Version 1)
Quarter: 2020Q3

REPORT INFORMATION
  Report Type: Spontaneous
  Country: US (occurrence: US)
  Receive Date: 20200820
  Receipt Date: 20200820
  Transmission Date: 20201103
  Serious: Yes (Other)
  Sender: FDA-Public Use
  Company Number: None

PATIENT
  Age: 63 Year
  Sex: Female
  Weight: 99.45 kg

DRUGS (12)
  1. METOPROLOL ER SUCCINATE [Suspect]
     Active Substance: METOPROLOL SUCCINATE
     Indication: ATRIAL FIBRILLATION
     Dosage: ?          QUANTITY:30 TABLET(S);?
     Route: 048
  2. LEVOTHYROXINE. [Concomitant]
     Active Substance: LEVOTHYROXINE
  3. QUINAPRIL. [Concomitant]
     Active Substance: QUINAPRIL
  4. TOPROL XL [Suspect]
     Active Substance: METOPROLOL SUCCINATE
     Indication: HYPERTENSION
     Dosage: ?          QUANTITY:30 TABLET(S);?
     Route: 048
     Dates: start: 20200601, end: 20200812
  5. ADULT MULTIVITAMIN [Concomitant]
  6. METOPROLOL ER SUCCINATE [Suspect]
     Active Substance: METOPROLOL SUCCINATE
     Indication: HYPERTENSION
     Dosage: ?          QUANTITY:30 TABLET(S);?
     Route: 048
  7. INSULIN VIA PUMP [Concomitant]
  8. ELIQUIS [Concomitant]
     Active Substance: APIXABAN
  9. TOPROL XL [Suspect]
     Active Substance: METOPROLOL SUCCINATE
     Indication: ATRIAL FIBRILLATION
     Dosage: ?          QUANTITY:30 TABLET(S);?
     Route: 048
     Dates: start: 20200601, end: 20200812
  10. FUROSEMIDE. [Concomitant]
     Active Substance: FUROSEMIDE
  11. BLOOD GLUCOSE MONITORING DEVICE [Concomitant]
  12. STATIN [Concomitant]
     Active Substance: UNSPECIFIED INGREDIENT

REACTIONS (8)
  - Wheezing [None]
  - Skin exfoliation [None]
  - Joint swelling [None]
  - Product substitution issue [None]
  - Peripheral swelling [None]
  - Swelling of eyelid [None]
  - Product use complaint [None]
  - Dyspnoea [None]

NARRATIVE: CASE EVENT DATE: 20200810
